FAERS Safety Report 18350475 (Version 3)
Quarter: 2020Q4

REPORT INFORMATION
  Report Type: Report from Study
  Country: ES (occurrence: ES)
  Receive Date: 20201006
  Receipt Date: 20201104
  Transmission Date: 20210114
  Serious: Yes (Death)
  Sender: FDA-Public Use
  Company Number: ES-JNJFOC-20200954227

PATIENT
  Age: 63 Year
  Sex: Male

DRUGS (14)
  1. AMIODARONE [Concomitant]
     Active Substance: AMIODARONE
     Dosage: 100 MG
     Dates: start: 20180424, end: 20200204
  2. ASPIRINA [Concomitant]
     Active Substance: ASPIRIN
     Dosage: 100 MG
     Dates: start: 20000101, end: 20200204
  3. DIGOXIN. [Concomitant]
     Active Substance: DIGOXIN
     Dosage: 0.125 MG
     Dates: start: 20050101, end: 20200204
  4. RIVAROXABAN [Suspect]
     Active Substance: RIVAROXABAN
     Indication: ATRIAL FIBRILLATION
  5. RIVAROXABAN [Suspect]
     Active Substance: RIVAROXABAN
     Indication: CARDIAC FAILURE
     Dosage: 15 MG, QD
     Route: 048
     Dates: start: 20160101, end: 20200201
  6. FUROSEMIDE. [Concomitant]
     Active Substance: FUROSEMIDE
     Dosage: 40 MG
     Dates: start: 20070101, end: 20200204
  7. SACUBITRIL;VALSARTAN [Concomitant]
     Active Substance: SACUBITRIL\VALSARTAN
     Dosage: 51/49 MG
     Dates: start: 20170501, end: 20200204
  8. EPLERENONE. [Concomitant]
     Active Substance: EPLERENONE
     Dosage: 25 MG
     Dates: start: 20180424, end: 20200204
  9. LANTUS [Concomitant]
     Active Substance: INSULIN GLARGINE
     Dosage: 25 IU
     Dates: start: 20150101, end: 20200204
  10. EMPAGLIFLOZIN [Concomitant]
     Active Substance: EMPAGLIFLOZIN
     Dosage: 10 MG
     Dates: start: 20170501, end: 20200204
  11. ATORVASTATIN;EZETIMIBE [Concomitant]
     Active Substance: ATORVASTATIN\EZETIMIBE
     Dosage: 80/10 MG
     Dates: start: 20160101, end: 20200204
  12. BISOPROLOL [Concomitant]
     Active Substance: BISOPROLOL
     Dosage: 10 MG
     Dates: start: 20070101, end: 20200204
  13. OMEPRAZOLE. [Concomitant]
     Active Substance: OMEPRAZOLE
     Dosage: 20 MG
     Dates: start: 20200101, end: 20200204
  14. ALPRAZOLAM. [Concomitant]
     Active Substance: ALPRAZOLAM
     Dosage: 0.25 MG
     Dates: start: 20161201, end: 20200204

REACTIONS (1)
  - Sudden death [Fatal]
